FAERS Safety Report 17291813 (Version 1)
Quarter: 2020Q1

REPORT INFORMATION
  Report Type: Spontaneous
  Country: US (occurrence: US)
  Receive Date: 20200118
  Receipt Date: 20200118
  Transmission Date: 20200409
  Serious: No
  Sender: FDA-Public Use
  Company Number: None

PATIENT
  Age: 25 Year
  Sex: Male
  Weight: 110.25 kg

DRUGS (1)
  1. ONDANSETRON ODT 4MG TABLETS [Suspect]
     Active Substance: ONDANSETRON
     Indication: NAUSEA
     Dosage: ?          QUANTITY:1 TABLET(S);OTHER ROUTE:DISSOLVED ON TONGUE?
     Dates: start: 20200116, end: 20200116

REACTIONS (9)
  - Chills [None]
  - Dyspnoea [None]
  - Headache [None]
  - Pain [None]
  - Muscle tightness [None]
  - Fatigue [None]
  - Nail discolouration [None]
  - Body temperature increased [None]
  - Tremor [None]

NARRATIVE: CASE EVENT DATE: 20200116
